FAERS Safety Report 16508296 (Version 1)
Quarter: 2019Q3

REPORT INFORMATION
  Report Type: Spontaneous
  Country: US (occurrence: US)
  Receive Date: 20190702
  Receipt Date: 20190702
  Transmission Date: 20191004
  Serious: No
  Sender: FDA-Public Use
  Company Number: US-ROCHE-2187500

PATIENT
  Sex: Female

DRUGS (2)
  1. XELODA [Suspect]
     Active Substance: CAPECITABINE
     Indication: COLON CANCER
     Dosage: BID FOR 7 DAYS ON AND 7 DAYS OFF
     Route: 048
     Dates: start: 20180724, end: 20180907
  2. XELODA [Suspect]
     Active Substance: CAPECITABINE
     Indication: RECTOSIGMOID CANCER

REACTIONS (2)
  - Dry skin [Unknown]
  - Skin exfoliation [Unknown]
